FAERS Safety Report 7490861-4 (Version None)
Quarter: 2011Q2

REPORT INFORMATION
  Report Type: 
  Country: None (occurrence: None)
  Receive Date: 20110519
  Receipt Date: 20110510
  Transmission Date: 20111010
  Serious: Yes (Hospitalization)
  Sender: FDA-Public Use
  Company Number: US-SANOFI-AVENTIS-2011SA030295

PATIENT
  Age: 78 Year
  Sex: Female

DRUGS (5)
  1. MULTAQ [Suspect]
     Indication: ATRIAL FIBRILLATION
     Route: 048
     Dates: start: 20091001
  2. ASPIRIN [Suspect]
     Route: 048
     Dates: start: 20060801, end: 20110412
  3. ASPIRIN [Suspect]
     Route: 065
     Dates: start: 20110415
  4. PLAVIX [Suspect]
     Route: 048
     Dates: start: 20060801, end: 20110412
  5. DABIGATRAN ETEXILATE [Suspect]
     Route: 065
     Dates: start: 20110327, end: 20110412

REACTIONS (3)
  - RECTAL HAEMORRHAGE [None]
  - ANAEMIA [None]
  - HAEMOGLOBIN ABNORMAL [None]
